FAERS Safety Report 4823877-4 (Version None)
Quarter: 2005Q4

REPORT INFORMATION
  Report Type: 
  Country: None (occurrence: None)
  Receive Date: 20051107
  Receipt Date: 20051025
  Transmission Date: 20060501
  Serious: Yes (Other)
  Sender: FDA-Public Use
  Company Number: 2005146286

PATIENT
  Age: 21 Year
  Sex: Male
  Weight: 147.419 kg

DRUGS (1)
  1. BENADRYL [Suspect]
     Indication: PRURITUS
     Dosage: 24 TABS DAILY, ORAL
     Route: 048
     Dates: start: 20051001

REACTIONS (1)
  - DRUG DEPENDENCE [None]
